FAERS Safety Report 5586407-8 (Version None)
Quarter: 2008Q1

REPORT INFORMATION
  Report Type: 
  Country: None (occurrence: None)
  Receive Date: 20080110
  Receipt Date: 20071231
  Transmission Date: 20080703
  Serious: Yes (Hospitalization)
  Sender: FDA-Public Use
  Company Number: US-ELI_LILLY_AND_COMPANY-US200801000699

PATIENT
  Age: 86 Year
  Sex: Male

DRUGS (3)
  1. OLANZAPINE [Suspect]
     Indication: PARANOIA
     Dosage: 2.5 MG, EACH EVENING
  2. FELODIPINE [Concomitant]
     Dosage: 5 MG, DAILY (1/D)
     Route: 048
  3. DONEPEZIL HCL [Concomitant]
     Indication: DEMENTIA
     Dosage: 5 MG, DAILY (1/D)

REACTIONS (4)
  - BENIGN PROSTATIC HYPERPLASIA [None]
  - GAIT DISTURBANCE [None]
  - NEPHROLITHIASIS [None]
  - RENAL FAILURE ACUTE [None]
